FAERS Safety Report 7607820-0 (Version None)
Quarter: 2011Q3

REPORT INFORMATION
  Report Type: 
  Country: None (occurrence: None)
  Receive Date: 20110714
  Receipt Date: 20110705
  Transmission Date: 20111222
  Serious: Yes (Hospitalization)
  Sender: FDA-Public Use
  Company Number: US-BIOGENIDEC-2009BI034608

PATIENT
  Age: 50 Year
  Sex: Female

DRUGS (3)
  1. TYSABRI [Suspect]
     Route: 042
     Dates: start: 20050222, end: 20050222
  2. TYSABRI [Suspect]
     Indication: MULTIPLE SCLEROSIS
     Route: 042
     Dates: start: 20070511
  3. RADIOACTIVE IODINE [Concomitant]
     Indication: HYPERTHYROIDISM
     Dates: start: 20060101, end: 20060101

REACTIONS (4)
  - MULTIPLE SCLEROSIS RELAPSE [None]
  - PROCEDURAL PAIN [None]
  - MEMORY IMPAIRMENT [None]
  - OSTEOARTHRITIS [None]
